FAERS Safety Report 8481385-6 (Version None)
Quarter: 2012Q3

REPORT INFORMATION
  Report Type: 
  Country: None (occurrence: None)
  Receive Date: 20120702
  Receipt Date: 20120628
  Transmission Date: 20120928
  Serious: Yes (Other)
  Sender: FDA-Public Use
  Company Number: CO-PFIZER INC-2012156793

PATIENT
  Age: 61 Year
  Sex: Female

DRUGS (4)
  1. SUMATRIPTAN [Concomitant]
     Indication: MIGRAINE
     Dosage: 100 MG, AS NEEDED 1X/DAY
     Route: 048
     Dates: start: 20070101
  2. NEOSALDINA [Concomitant]
     Indication: MIGRAINE
     Dosage: 1 OR 2 DAILY, AS NEEDED
     Route: 048
  3. CLONAZEPAM [Concomitant]
     Indication: ANXIETY
     Dosage: 5 MG, HALF IN THE MORNING AND HALF AT NIGHT
     Route: 048
     Dates: start: 20100101
  4. EFFEXOR [Suspect]
     Indication: ANXIETY
     Dosage: 150 MG, 1X/DAY
     Route: 048
     Dates: start: 20090101

REACTIONS (2)
  - ARTHROPATHY [None]
  - DRUG INEFFECTIVE [None]
